FAERS Safety Report 25957117 (Version 1)
Quarter: 2025Q4

REPORT INFORMATION
  Report Type: Spontaneous
  Country: US (occurrence: None)
  Receive Date: 20251024
  Receipt Date: 20251024
  Transmission Date: 20260118
  Serious: Yes (Disabling, Other)
  Sender: FDA-CTU
  Company Number: None

PATIENT
  Age: 53 Year

DRUGS (12)
  1. CIPROFLOXACIN [Suspect]
     Active Substance: CIPROFLOXACIN
  2. MOXIFLOXACIN [Suspect]
     Active Substance: MOXIFLOXACIN
  3. PREDNISONE [Suspect]
     Active Substance: PREDNISONE
  4. LOSARTAN [Concomitant]
     Active Substance: LOSARTAN
  5. ROSUVASTATIN [Concomitant]
     Active Substance: ROSUVASTATIN
  6. MIRENA [Concomitant]
     Active Substance: LEVONORGESTREL
  7. mounjaro (recently started) [Concomitant]
  8. GABAPENTIN [Concomitant]
     Active Substance: GABAPENTIN
  9. votaren 75mg 2x per day [Concomitant]
  10. alpha lipoic acid 600 mg [Concomitant]
  11. periodic multivitamin [Concomitant]
  12. history of Advil use for muscular pain [Concomitant]

REACTIONS (9)
  - Small fibre neuropathy [None]
  - COVID-19 [None]
  - Sinusitis [None]
  - Post procedural infection [None]
  - Tinnitus [None]
  - Tendon rupture [None]
  - Ototoxicity [None]
  - Plantar fasciitis [None]
  - Tendonitis [None]

NARRATIVE: CASE EVENT DATE: 20251001
